FAERS Safety Report 7286259-4 (Version None)
Quarter: 2011Q1

REPORT INFORMATION
  Report Type: 
  Country: None (occurrence: None)
  Receive Date: 20110210
  Receipt Date: 20110202
  Transmission Date: 20110831
  Serious: Yes (Other)
  Sender: FDA-Public Use
  Company Number: PHHY2011IT08153

PATIENT
  Sex: Female

DRUGS (2)
  1. AVASTIN [Concomitant]
     Dosage: 400 MG,
  2. ZOMETA [Suspect]
     Indication: METASTASES TO BONE
     Dosage: 4 MG, MONTHLY
     Route: 042
     Dates: start: 20100101, end: 20100801

REACTIONS (3)
  - BONE DISORDER [None]
  - LOOSE TOOTH [None]
  - OSTEONECROSIS OF JAW [None]
